FAERS Safety Report 15587117 (Version 2)
Quarter: 2018Q4

REPORT INFORMATION
  Report Type: Spontaneous
  Country: US (occurrence: US)
  Receive Date: 20181105
  Receipt Date: 20181109
  Transmission Date: 20190205
  Serious: Yes (Disabling, Other)
  Sender: FDA-Public Use
  Company Number: US-REGENERON PHARMACEUTICALS, INC.-2018-42730

PATIENT

DRUGS (2)
  1. EYLEA [Suspect]
     Active Substance: AFLIBERCEPT
     Indication: MACULAR OEDEMA
     Dosage: EVERY 6-8 WEEKS INTO RIGHT EYE, LAST DOSE
     Route: 031
     Dates: start: 20181019, end: 20181019
  2. EYLEA [Suspect]
     Active Substance: AFLIBERCEPT
     Indication: RETINAL VEIN OCCLUSION
     Dosage: EVERY 6-8 WEEKS INTO RIGHT EYE
     Route: 031
     Dates: start: 20170303

REACTIONS (4)
  - Underdose [Unknown]
  - Iridocyclitis [Unknown]
  - Eye infection [Recovering/Resolving]
  - Blindness unilateral [Unknown]

NARRATIVE: CASE EVENT DATE: 20170303
